FAERS Safety Report 23237257 (Version 1)
Quarter: 2023Q4

REPORT INFORMATION
  Report Type: Spontaneous
  Country: CN (occurrence: CN)
  Receive Date: 20231128
  Receipt Date: 20231128
  Transmission Date: 20240110
  Serious: Yes (Hospitalization, Other)
  Sender: FDA-Public Use
  Company Number: CN-AMERICAN REGENT INC-2023002690

PATIENT
  Age: 49 Year
  Sex: Male
  Weight: 60 kg

DRUGS (1)
  1. VENOFER [Suspect]
     Active Substance: IRON SUCROSE
     Indication: Nephrogenic anaemia
     Dosage: 5 ML PLUS SODIUM CHLORIDE INJECTION 200 ML VEHICLE SOLUTION (100 MG, 1 IN1 D)
     Dates: start: 20201030, end: 20201030

REACTIONS (9)
  - Atrial fibrillation [Unknown]
  - Chronic kidney disease [Unknown]
  - Sepsis [Unknown]
  - Staphylococcal infection [Unknown]
  - Pain [Unknown]
  - Temperature intolerance [Recovering/Resolving]
  - Condition aggravated [Unknown]
  - Pyrexia [Recovered/Resolved]
  - Asthenia [Recovering/Resolving]

NARRATIVE: CASE EVENT DATE: 20201030
